FAERS Safety Report 24459305 (Version 1)
Quarter: 2024Q4

REPORT INFORMATION
  Report Type: Other
  Country: BE (occurrence: BE)
  Receive Date: 20241018
  Receipt Date: 20241018
  Transmission Date: 20250115
  Serious: Yes (Death)
  Sender: ANI
  Company Number: BE-ANIPHARMA-012529

PATIENT
  Age: 71 Year
  Sex: Female

DRUGS (14)
  1. CYCLOPHOSPHAMIDE [Suspect]
     Active Substance: CYCLOPHOSPHAMIDE
     Indication: HER2 negative breast cancer
  2. UNSPECIFIED INGREDIENT [Concomitant]
     Active Substance: UNSPECIFIED INGREDIENT
  3. PALBOCICLIB [Concomitant]
     Active Substance: PALBOCICLIB
     Indication: HER2 negative breast cancer
  4. FULVESTRANT [Concomitant]
     Active Substance: FULVESTRANT
     Indication: HER2 negative breast cancer
  5. PACLITAXEL [Concomitant]
     Active Substance: PACLITAXEL
     Indication: HER2 negative breast cancer
  6. METHOTREXATE [Concomitant]
     Active Substance: METHOTREXATE
     Indication: HER2 negative breast cancer
  7. CAPECITABINE [Concomitant]
     Active Substance: CAPECITABINE
     Indication: HER2 negative breast cancer
  8. DEXAMETHASONE [Concomitant]
     Active Substance: DEXAMETHASONE
     Indication: Blindness
  9. TOBRAMYCIN SULFATE [Concomitant]
     Active Substance: TOBRAMYCIN SULFATE
     Indication: Blindness
  10. ARTIFICIAL TEARS [Concomitant]
     Indication: Blindness
  11. METHASONE [Concomitant]
     Indication: Blindness
  12. OFLOXACIN [Concomitant]
     Active Substance: OFLOXACIN
     Indication: Blindness
  13. CAPECITABINE [Concomitant]
     Active Substance: CAPECITABINE
     Indication: HER2 negative breast cancer
  14. CAPECITABINE [Concomitant]
     Active Substance: CAPECITABINE
     Indication: HER2 negative breast cancer
     Dosage: LOWER DOSE

REACTIONS (1)
  - Drug ineffective [Fatal]
